FAERS Safety Report 12300411 (Version 1)
Quarter: 2016Q2

REPORT INFORMATION
  Report Type: Spontaneous
  Country: CN (occurrence: CN)
  Receive Date: 20160425
  Receipt Date: 20160425
  Transmission Date: 20160815
  Serious: Yes (Hospitalization, Other)
  Sender: FDA-Public Use
  Company Number: CN-GLAXOSMITHKLINE-CN2016GSK055364

PATIENT

DRUGS (1)
  1. LAMOTRIGINE. [Suspect]
     Active Substance: LAMOTRIGINE
     Indication: EPILEPSY
     Dosage: 25 MG, 1D
     Dates: start: 201403, end: 20140405

REACTIONS (30)
  - Conjunctival hyperaemia [Recovering/Resolving]
  - Swelling [Recovering/Resolving]
  - Eyelid function disorder [Recovering/Resolving]
  - Papule [Recovered/Resolved]
  - Stevens-Johnson syndrome [Recovering/Resolving]
  - Blister [Recovering/Resolving]
  - Eating disorder [Recovering/Resolving]
  - Arthralgia [Recovering/Resolving]
  - Dysuria [Recovering/Resolving]
  - Pollakiuria [Recovering/Resolving]
  - Oropharyngeal pain [Recovered/Resolved]
  - Psoriasis [Recovering/Resolving]
  - Pyrexia [Recovered/Resolved]
  - Oral mucosa erosion [Recovered/Resolved]
  - Pain [Recovering/Resolving]
  - Productive cough [Recovering/Resolving]
  - Nikolsky^s sign [Recovering/Resolving]
  - Erythema [Recovered/Resolved]
  - Eye discharge [Recovering/Resolving]
  - Skin exfoliation [Recovering/Resolving]
  - Haemorrhage [Recovering/Resolving]
  - Drug hypersensitivity [Recovering/Resolving]
  - Rash generalised [Recovered/Resolved]
  - Headache [Recovering/Resolving]
  - Skin lesion [Recovered/Resolved]
  - Oropharyngeal pain [Recovering/Resolving]
  - Urinary tract infection [Recovering/Resolving]
  - Erythema multiforme [Recovering/Resolving]
  - Genital erosion [Recovered/Resolved]
  - Discomfort [Recovering/Resolving]
